FAERS Safety Report 9744455 (Version 1)
Quarter: 2013Q4

REPORT INFORMATION
  Report Type: Spontaneous
  Country: DK (occurrence: DE)
  Receive Date: 20131210
  Receipt Date: 20131210
  Transmission Date: 20140711
  Serious: Yes (Congenital Anomaly)
  Sender: FDA-Public Use
  Company Number: DE-FRI-1000052060

PATIENT
  Age: 0 Day
  Sex: Female
  Weight: 1.9 kg

DRUGS (1)
  1. CITALOPRAM [Suspect]
     Indication: DEPRESSION
     Dosage: 20 MG
     Route: 064

REACTIONS (8)
  - Ventricular septal defect [Recovering/Resolving]
  - Atrial septal defect [Recovering/Resolving]
  - Patent ductus arteriosus [Recovering/Resolving]
  - Small for dates baby [Recovered/Resolved]
  - Apgar score low [Recovered/Resolved]
  - Feeding disorder [Recovered/Resolved]
  - Premature baby [Recovering/Resolving]
  - Foetal exposure during pregnancy [Recovering/Resolving]
